FAERS Safety Report 8225491 (Version 3)
Quarter: 2012Q4

REPORT INFORMATION
  Report Type: Report from Study
  Country: DE (occurrence: DE)
  Receive Date: 20111103
  Receipt Date: 20121129
  Transmission Date: 20130627
  Serious: Yes (Other)
  Sender: FDA-Public Use
  Company Number: DE-UCBSA-044174

PATIENT
  Age: 69 Year
  Sex: Female

DRUGS (10)
  1. CERTOLIZUMAB PEGOL [Suspect]
     Indication: RHEUMATOID ARTHRITIS
     Route: 058
     Dates: start: 20110527, end: 20110708
  2. DICLOFENAC [Concomitant]
     Indication: RHEUMATOID ARTHRITIS
     Dates: start: 1997
  3. L-THYROSIN [Concomitant]
     Indication: HYPOTHYROIDISM
  4. PANTOPRAZOLE [Concomitant]
     Indication: GASTRIC ULCER
  5. METOPROLOL [Concomitant]
     Indication: HYPERTENSION
     Dates: start: 201105
  6. DECORTIN [Concomitant]
     Indication: RHEUMATOID ARTHRITIS
     Dates: start: 1997, end: 20110715
  7. DECORTIN [Concomitant]
     Indication: RHEUMATOID ARTHRITIS
     Dates: start: 20110715
  8. CALCIUM + VIT D [Concomitant]
     Indication: OSTEOPOROSIS PROPHYLAXIS
  9. FOLIC ACID [Concomitant]
     Indication: PROPHYLAXIS
     Dosage: QUANTITY SUFFICIENT
  10. MTX [Concomitant]
     Indication: RHEUMATOID ARTHRITIS
     Dosage: QUANTITY SUFFICIENT
     Dates: start: 2002

REACTIONS (1)
  - Rosacea [Not Recovered/Not Resolved]
